FAERS Safety Report 20022840 (Version 1)
Quarter: 2021Q4

REPORT INFORMATION
  Report Type: Spontaneous
  Country: CN (occurrence: CN)
  Receive Date: 20211102
  Receipt Date: 20211102
  Transmission Date: 20220303
  Serious: Yes (Congenital Anomaly, Other)
  Sender: FDA-Public Use
  Company Number: CN-NOVARTISPH-NVSC2021CN249281

PATIENT
  Weight: 3.4 kg

DRUGS (4)
  1. OXCARBAZEPINE [Suspect]
     Active Substance: OXCARBAZEPINE
     Indication: Foetal exposure during pregnancy
     Dosage: MATERNAL DOSE: 300 MG, BID
     Route: 064
  2. TOPIRAMATE [Suspect]
     Active Substance: TOPIRAMATE
     Indication: Foetal exposure during pregnancy
     Dosage: MATERNAL DOSE: 100 MG, BID
     Route: 064
  3. TOPIRAMATE [Suspect]
     Active Substance: TOPIRAMATE
     Dosage: MATERNAL DOSE: 150 MG, QD (50 MG AND 100 MG ONCE IN MORNING AND EVENING)
     Route: 064
  4. LAMOTRIGINE [Suspect]
     Active Substance: LAMOTRIGINE
     Indication: Foetal exposure during pregnancy
     Dosage: MATERNAL DOSE: 100 MG, BID
     Route: 064

REACTIONS (4)
  - Skeletal dysplasia [Unknown]
  - Chromosomal deletion [Unknown]
  - Speech disorder developmental [Unknown]
  - Foetal exposure during pregnancy [Unknown]
